FAERS Safety Report 4794292-7 (Version None)
Quarter: 2005Q4

REPORT INFORMATION
  Report Type: 
  Country: None (occurrence: None)
  Receive Date: 20051011
  Receipt Date: 20051007
  Transmission Date: 20060501
  Serious: Yes (Other)
  Sender: FDA-Public Use
  Company Number: BE-GLAXOSMITHKLINE-B0396710A

PATIENT
  Age: 40 Year
  Sex: Male

DRUGS (1)
  1. SUMATRIPTAN SUCCINATE [Suspect]
     Indication: MIGRAINE
     Dosage: 50MG SEE DOSAGE TEXT
     Route: 048

REACTIONS (1)
  - DRUG ABUSER [None]
